FAERS Safety Report 4735907-9 (Version None)
Quarter: 2005Q3

REPORT INFORMATION
  Report Type: 
  Country: None (occurrence: None)
  Receive Date: 20050805
  Receipt Date: 20050713
  Transmission Date: 20060218
  Serious: Yes (Hospitalization, Other)
  Sender: FDA-Public Use
  Company Number: DE-AMGEN-UK142103

PATIENT
  Sex: Male
  Weight: 65 kg

DRUGS (2)
  1. NEUPOGEN [Suspect]
     Indication: PERIPHERAL BLOOD STEM CELL APHERESIS
     Route: 058
     Dates: start: 20050708, end: 20050712
  2. PARACETAMOL [Concomitant]
     Route: 065

REACTIONS (1)
  - DRUG INEFFECTIVE [None]
